FAERS Safety Report 22178042 (Version 2)
Quarter: 2024Q4

REPORT INFORMATION
  Report Type: Spontaneous
  Country: US (occurrence: US)
  Receive Date: 20230405
  Receipt Date: 20241121
  Transmission Date: 20250114
  Serious: Yes (Other)
  Sender: MYLAN
  Company Number: US-MYLANLABS-2023M1035898

PATIENT
  Sex: Female

DRUGS (1)
  1. TAMOXIFEN [Suspect]
     Active Substance: TAMOXIFEN
     Indication: Neoplasm malignant
     Dosage: 20 MILLIGRAM
     Route: 065

REACTIONS (3)
  - Maculopathy [Unknown]
  - Retinal toxicity [Unknown]
  - Product use issue [Unknown]
